FAERS Safety Report 11689079 (Version 3)
Quarter: 2015Q4

REPORT INFORMATION
  Report Type: Report from Study
  Country: GB (occurrence: GB)
  Receive Date: 20151102
  Receipt Date: 20151222
  Transmission Date: 20160304
  Serious: Yes (Death, Hospitalization)
  Sender: FDA-Public Use
  Company Number: GB-ROCHE-1653519

PATIENT
  Age: 91 Year
  Sex: Male

DRUGS (7)
  1. RAMIPRIL. [Concomitant]
     Active Substance: RAMIPRIL
  2. ATORVASTATIN [Concomitant]
     Active Substance: ATORVASTATIN
     Route: 065
     Dates: start: 20150729
  3. BISOPROLOL [Concomitant]
     Active Substance: BISOPROLOL
  4. ACETYLSALICYLIC ACID [Concomitant]
     Active Substance: ASPIRIN
     Route: 048
     Dates: start: 20151020
  5. ACETYLSALICYLIC ACID [Concomitant]
     Active Substance: ASPIRIN
     Indication: MYOCARDIAL INFARCTION
     Route: 065
     Dates: start: 20061117
  6. RANIBIZUMAB [Suspect]
     Active Substance: RANIBIZUMAB
     Indication: NEOVASCULAR AGE-RELATED MACULAR DEGENERATION
     Dosage: DOSE: 0.5MG/0.05ML?MOST RECENT DOSE PRIOR TO SAE 24/AUG/2015
     Route: 065
     Dates: start: 20130702, end: 20151020
  7. ISOSORBIDE MONONITRATE. [Concomitant]
     Active Substance: ISOSORBIDE MONONITRATE
     Route: 065
     Dates: start: 19990329

REACTIONS (4)
  - Sepsis [Not Recovered/Not Resolved]
  - Endocarditis [Fatal]
  - Myocardial infarction [Not Recovered/Not Resolved]
  - Staphylococcal bacteraemia [Fatal]

NARRATIVE: CASE EVENT DATE: 20151020
